FAERS Safety Report 5049614-9 (Version None)
Quarter: 2006Q2

REPORT INFORMATION
  Report Type: 
  Country: None (occurrence: None)
  Receive Date: 20060614
  Receipt Date: 20060428
  Transmission Date: 20061013
  Serious: Yes (Other)
  Sender: FDA-Public Use
  Company Number: 446315

PATIENT
  Age: 52 Year
  Sex: Female

DRUGS (2)
  1. BONIVA [Suspect]
     Indication: BONE DENSITY DECREASED
     Dosage: 150 MG 1 PER MONTH ORAL
     Route: 048
     Dates: start: 20060115, end: 20060415
  2. NEXIUM [Concomitant]

REACTIONS (1)
  - OESOPHAGEAL SPASM [None]
